FAERS Safety Report 7783833-3 (Version None)
Quarter: 2011Q3

REPORT INFORMATION
  Report Type: 
  Country: None (occurrence: None)
  Receive Date: 20110928
  Receipt Date: 20110921
  Transmission Date: 20111222
  Serious: Yes (Hospitalization, Other)
  Sender: FDA-Public Use
  Company Number: US-B.I. PHARMACEUTICALS,INC./RIDGEFIELD-2011-BP-18141BP

PATIENT
  Age: 84 Year
  Sex: Male

DRUGS (5)
  1. PRADAXA [Suspect]
     Indication: ATRIAL FIBRILLATION
     Dosage: 150 MG
     Route: 048
  2. ASPIRIN [Concomitant]
     Dosage: 81 MG
     Route: 048
  3. METOPROLOL TARTRATE [Concomitant]
     Dosage: 50 MG
  4. METAMUCIL-2 [Concomitant]
  5. COUMADIN [Concomitant]

REACTIONS (9)
  - DISORIENTATION [None]
  - HAEMORRHAGIC INFARCTION [None]
  - FALL [None]
  - CEREBRAL INFARCTION [None]
  - HAEMORRHAGIC STROKE [None]
  - MENTAL STATUS CHANGES [None]
  - HAEMORRHAGE INTRACRANIAL [None]
  - CONFUSIONAL STATE [None]
  - NAUSEA [None]
